FAERS Safety Report 5570356-5 (Version None)
Quarter: 2007Q4

REPORT INFORMATION
  Report Type: 
  Country: None (occurrence: None)
  Receive Date: 20071221
  Receipt Date: 20071219
  Transmission Date: 20080405
  Serious: Yes (Hospitalization, Disabling)
  Sender: FDA-Public Use
  Company Number: PHHO2007PL20442

PATIENT
  Age: 66 Year
  Sex: Female
  Weight: 74 kg

DRUGS (1)
  1. AMN107 [Suspect]
     Indication: GASTROINTESTINAL STROMAL TUMOUR
     Dosage: 800MG DAILY
     Route: 048
     Dates: start: 20071123, end: 20071130

REACTIONS (8)
  - ABDOMINAL PAIN [None]
  - DRUG INEFFECTIVE [None]
  - ILEUS [None]
  - MALIGNANT NEOPLASM PROGRESSION [None]
  - NAUSEA [None]
  - TUMOUR EXCISION [None]
  - TUMOUR NECROSIS [None]
  - VOMITING [None]
